FAERS Safety Report 18550362 (Version 1)
Quarter: 2020Q4

REPORT INFORMATION
  Report Type: Spontaneous
  Country: DE (occurrence: DE)
  Receive Date: 20201126
  Receipt Date: 20201126
  Transmission Date: 20210114
  Serious: Yes (Other)
  Sender: FDA-Public Use
  Company Number: DE-TEVA-2020-DE-1851653

PATIENT
  Age: 56 Year
  Sex: Female

DRUGS (2)
  1. ZEJULA [Interacting]
     Active Substance: NIRAPARIB
  2. LIDOCAIN [Suspect]
     Active Substance: LIDOCAINE
     Indication: LOCAL ANAESTHESIA
     Route: 058

REACTIONS (5)
  - Dysarthria [Unknown]
  - Drug interaction [Unknown]
  - Vomiting [Unknown]
  - Oxygen saturation decreased [Unknown]
  - Respiratory depression [Unknown]

NARRATIVE: CASE EVENT DATE: 20201105
